FAERS Safety Report 5604077-7 (Version None)
Quarter: 2008Q1

REPORT INFORMATION
  Report Type: 
  Country: None (occurrence: None)
  Receive Date: 20080123
  Receipt Date: 20080123
  Transmission Date: 20080703
  Serious: Yes (Disabling, Other)
  Sender: FDA-Public Use
  Company Number: None

PATIENT
  Age: 56 Year
  Sex: Male
  Weight: 90.7194 kg

DRUGS (2)
  1. ZOLOFT [Suspect]
     Dosage: VARIOUS VARIOUS PO
     Route: 048
     Dates: start: 19970101, end: 20000101
  2. LIPITOR [Suspect]
     Dosage: GRADUAL BUILDUP NEVER GOT THERE PO
     Route: 048
     Dates: start: 20000101, end: 20000124

REACTIONS (10)
  - CATATONIA [None]
  - CONDITION AGGRAVATED [None]
  - DEPRESSION [None]
  - DRUG INTOLERANCE [None]
  - ECONOMIC PROBLEM [None]
  - LOSS OF EMPLOYMENT [None]
  - MYALGIA [None]
  - SELF ESTEEM DECREASED [None]
  - TREATMENT FAILURE [None]
  - UNEVALUABLE EVENT [None]
